FAERS Safety Report 8382473-5 (Version None)
Quarter: 2012Q2

REPORT INFORMATION
  Report Type: 
  Country: None (occurrence: None)
  Receive Date: 20120524
  Receipt Date: 20120521
  Transmission Date: 20120825
  Serious: Yes (Life-Threatening, Hospitalization)
  Sender: FDA-Public Use
  Company Number: PHHO2012IL007705

PATIENT
  Sex: Female
  Weight: 17 kg

DRUGS (6)
  1. ILARIS [Suspect]
     Indication: JUVENILE ARTHRITIS
     Dosage: 0.45 ML, UNK
     Dates: start: 20100111, end: 20120208
  2. METHYLPREDNISOLONE [Concomitant]
     Indication: JUVENILE ARTHRITIS
     Dosage: 10 MG/ DAY
  3. VITAMIN D [Concomitant]
  4. AMOXICILLIN [Concomitant]
  5. IRON [Concomitant]
  6. METHOTREXATE [Concomitant]
     Indication: JUVENILE ARTHRITIS
     Dosage: UNK
     Dates: end: 20120101

REACTIONS (3)
  - PERITONITIS [None]
  - SEPTIC SHOCK [None]
  - GASTROENTERITIS [None]
